FAERS Safety Report 22068100 (Version 1)
Quarter: 2023Q1

REPORT INFORMATION
  Report Type: Spontaneous
  Country: IE (occurrence: IE)
  Receive Date: 20230307
  Receipt Date: 20230307
  Transmission Date: 20230417
  Serious: Yes (Disabling)
  Sender: FDA-Public Use
  Company Number: None

PATIENT
  Age: 36 Year
  Sex: Female
  Weight: 90 kg

DRUGS (5)
  1. PANTOPRAZOLE SODIUM [Suspect]
     Active Substance: PANTOPRAZOLE SODIUM
     Indication: Prophylaxis against gastrointestinal ulcer
     Dates: start: 20230114, end: 20230121
  2. IBUPROFEN [Concomitant]
     Active Substance: IBUPROFEN
     Indication: Procedural pain
     Dosage: DAILY DOSAGE: UP TO 1500 MG
     Dates: start: 20230114, end: 20230118
  3. AMOXICILLIN\CLAVULANATE POTASSIUM [Concomitant]
     Active Substance: AMOXICILLIN\CLAVULANATE POTASSIUM
     Indication: Postoperative care
     Dosage: 3 X DAILY  ,FOR ACTIVE INGREDIENT CLAVULANIC ACID (IN THE FORM OF POTASSIUM CLAVULANATE) THE STRENGT
     Dates: start: 20230114, end: 20230117
  4. SERTRALINE  (GENERIC) [Concomitant]
     Indication: Anxiety
     Dosage: DAILY DOSE: 50 MG ,PATIENT WAS TAKING SERTRALINE FOR FOR CA. 18 MONTHS. WAS TAKING 150 MG, SLOWLY DE
     Dates: end: 20230112
  5. ACETAMINOPHEN [Concomitant]
     Active Substance: ACETAMINOPHEN
     Indication: Procedural pain
     Dosage: DAILY DOSAGE: UP TO 4000 MG (FOR 3 DAYS), UP TO 1500 MG AFTER
     Dates: start: 20230114, end: 20230124

REACTIONS (4)
  - Paraesthesia [Recovered/Resolved]
  - Dizziness [Recovered/Resolved]
  - Paraesthesia oral [Recovered/Resolved]
  - Loss of personal independence in daily activities [Recovered/Resolved]

NARRATIVE: CASE EVENT DATE: 20230117
